FAERS Safety Report 8740715 (Version 2)
Quarter: 2012Q4

REPORT INFORMATION
  Report Type: Report from Study
  Country: JP (occurrence: JP)
  Receive Date: 20120823
  Receipt Date: 20121029
  Transmission Date: 20130627
  Serious: Yes (Other)
  Sender: FDA-Public Use
  Company Number: JP-ROCHE-1105077

PATIENT
  Age: 72 Year
  Sex: Male

DRUGS (7)
  1. METHOXY POLYETHYLENE GLYCOL-EPOETIN BETA [Suspect]
     Indication: NEPHROGENIC ANAEMIA
     Route: 042
     Dates: start: 20120531, end: 20120614
  2. LASIX [Concomitant]
     Indication: GLOMERULONEPHRITIS CHRONIC
     Route: 048
  3. FOSRENOL [Concomitant]
     Indication: GLOMERULONEPHRITIS CHRONIC
     Route: 048
  4. ZYLORIC [Concomitant]
     Indication: GLOMERULONEPHRITIS CHRONIC
     Route: 048
  5. BAYASPIRIN [Concomitant]
     Route: 048
  6. DIART [Concomitant]
     Indication: GLOMERULONEPHRITIS CHRONIC
     Route: 048
  7. PARIET [Concomitant]
     Route: 048

REACTIONS (1)
  - Decreased appetite [Recovering/Resolving]
